FAERS Safety Report 9993298 (Version 1)
Quarter: 2014Q1

REPORT INFORMATION
  Report Type: Spontaneous
  Country: US (occurrence: US)
  Receive Date: 20140310
  Receipt Date: 20140310
  Transmission Date: 20141002
  Serious: Yes (Other)
  Sender: FDA-Public Use
  Company Number: US-TEVA-466932USA

PATIENT
  Age: 76 Year
  Sex: Male

DRUGS (1)
  1. DOXORUBICIN [Suspect]
     Indication: HEPATOCELLULAR CARCINOMA
     Dosage: EMBOLIC MATERIAL PRELOADED WITH DOXORUBICIN 50MG
     Route: 013

REACTIONS (2)
  - Pulmonary infarction [Recovering/Resolving]
  - Klebsiella infection [Unknown]
